FAERS Safety Report 4622966-7 (Version None)
Quarter: 2005Q1

REPORT INFORMATION
  Report Type: 
  Country: None (occurrence: None)
  Receive Date: 20050329
  Receipt Date: 20031125
  Transmission Date: 20050727
  Serious: Yes (Death)
  Sender: FDA-Public Use
  Company Number: 10030

PATIENT
  Age: 74 Year
  Sex: Female

DRUGS (1)
  1. METHOTREXATE [Suspect]
     Dosage: 4 MG WEEKLY
     Dates: start: 20021001

REACTIONS (2)
  - BONE MARROW DEPRESSION [None]
  - SEPSIS [None]
